FAERS Safety Report 4372613-7 (Version None)
Quarter: 2004Q2

REPORT INFORMATION
  Report Type: 
  Country: None (occurrence: None)
  Receive Date: 20040526
  Receipt Date: 20040518
  Transmission Date: 20050107
  Serious: Yes (Hospitalization)
  Sender: FDA-Public Use
  Company Number: RTD20040003

PATIENT
  Age: 49 Year
  Sex: Male

DRUGS (3)
  1. RANITIDINE [Suspect]
     Indication: ABDOMINAL PAIN UPPER
     Dosage: PO
     Route: 048
  2. COCAINE [Suspect]
  3. ALCOHOL [Suspect]
     Dosage: PO
     Route: 048

REACTIONS (7)
  - ABNORMAL FAECES [None]
  - ACHLORHYDRIA [None]
  - BLOOD ALBUMIN DECREASED [None]
  - BLOOD MAGNESIUM DECREASED [None]
  - CLOSTRIDIUM COLITIS [None]
  - DRUG SCREEN POSITIVE [None]
  - GIARDIASIS [None]
